FAERS Safety Report 7554837-0 (Version None)
Quarter: 2011Q2

REPORT INFORMATION
  Report Type: 
  Country: None (occurrence: None)
  Receive Date: 20110617
  Receipt Date: 20110606
  Transmission Date: 20111010
  Serious: Yes (Hospitalization)
  Sender: FDA-Public Use
  Company Number: JP-MERCK-1106USA01074

PATIENT
  Age: 86 Year
  Sex: Female

DRUGS (4)
  1. COZAAR [Suspect]
     Dosage: BEFORE BEDTIME
     Route: 048
     Dates: end: 20110607
  2. ADONA [Concomitant]
     Dosage: DIVIDED DOSE FREQUENCY UNKNOWN
     Route: 065
  3. AMLODIPINE BESYLATE [Concomitant]
     Route: 048
  4. CARNACULIN [Concomitant]
     Dosage: DIVIDED DOSE FREQUENCY UNKNOWN
     Route: 048

REACTIONS (3)
  - LOSS OF CONSCIOUSNESS [None]
  - YAWNING [None]
  - NAUSEA [None]
